FAERS Safety Report 9210513 (Version 2)
Quarter: 2013Q2

REPORT INFORMATION
  Report Type: Spontaneous
  Country: US (occurrence: US)
  Receive Date: 20130404
  Receipt Date: 20130507
  Transmission Date: 20140414
  Serious: No
  Sender: FDA-Public Use
  Company Number: US-PFIZER INC-2013104669

PATIENT
  Age: 86 Year
  Sex: Female

DRUGS (3)
  1. ADVIL PM [Suspect]
     Indication: SINUS DISORDER
     Dosage: TWO TABLETS DAILY
     Route: 048
     Dates: start: 201301
  2. SEROQUEL [Suspect]
     Dosage: 25 MG, DAILY
  3. SEROQUEL [Suspect]
     Dosage: 100 MG, DAILY
     Dates: end: 201301

REACTIONS (4)
  - Drug ineffective [Unknown]
  - Insomnia [Recovered/Resolved]
  - Aggression [Recovered/Resolved]
  - Somnolence [Unknown]
